FAERS Safety Report 8388804-4 (Version None)
Quarter: 2012Q2

REPORT INFORMATION
  Report Type: 
  Country: None (occurrence: None)
  Receive Date: 20120528
  Receipt Date: 20120517
  Transmission Date: 20120825
  Serious: Yes (Hospitalization)
  Sender: FDA-Public Use
  Company Number: JP-BRISTOL-MYERS SQUIBB COMPANY-16624462

PATIENT
  Age: 59 Year
  Sex: Male

DRUGS (3)
  1. VALPROATE SODIUM [Concomitant]
     Dosage: 1DF= TABS
  2. ABILIFY [Suspect]
     Indication: BIPOLAR DISORDER
     Dosage: INCREASED REG2-24MG REG3-30MG DECREASED REG4-24MG
     Route: 048
  3. ZOTEPINE [Concomitant]
     Dosage: 1DF= TABS

REACTIONS (2)
  - INSOMNIA [None]
  - MANIA [None]
